FAERS Safety Report 15694768 (Version 2)
Quarter: 2018Q4

REPORT INFORMATION
  Report Type: Spontaneous
  Country: US (occurrence: US)
  Receive Date: 20181206
  Receipt Date: 20181210
  Transmission Date: 20190205
  Serious: Yes (Hospitalization, Other)
  Sender: FDA-Public Use
  Company Number: US-PFIZER INC-2018497538

PATIENT
  Age: 56 Year
  Sex: Male
  Weight: 88 kg

DRUGS (1)
  1. LYRICA [Suspect]
     Active Substance: PREGABALIN
     Indication: DIABETIC NEUROPATHY
     Dosage: 300 MG, 2X/DAY
     Route: 048

REACTIONS (4)
  - Memory impairment [Unknown]
  - Gait disturbance [Unknown]
  - Cerebrovascular accident [Recovered/Resolved]
  - Product use issue [Unknown]

NARRATIVE: CASE EVENT DATE: 200906
